FAERS Safety Report 21189410 (Version 1)
Quarter: 2022Q3

REPORT INFORMATION
  Report Type: Spontaneous
  Country: FR (occurrence: FR)
  Receive Date: 20220809
  Receipt Date: 20220809
  Transmission Date: 20221027
  Serious: Yes (Hospitalization)
  Sender: FDA-Public Use
  Company Number: None

PATIENT
  Age: 64 Year
  Sex: Female
  Weight: 45 kg

DRUGS (37)
  1. PREDNISONE [Suspect]
     Active Substance: PREDNISONE
     Indication: Neuroendocrine tumour of the lung
     Dosage: UNIT DOSE :  40 MG, , FREQUENCY TIME : 1 DAY, DURATION : 10 DAYS
     Route: 065
     Dates: start: 20220527, end: 20220606
  2. PREDNISONE [Suspect]
     Active Substance: PREDNISONE
     Dosage: UNIT DOSE :  80 MG, , FREQUENCY TIME : 1 DAY, DURATION : 14 DAYS
     Route: 065
     Dates: start: 20220622
  3. PREDNISONE [Suspect]
     Active Substance: PREDNISONE
     Dosage: UNIT DOSE :  40 MG, , FREQUENCY TIME : 1 DAY, DURATION : 2 MONTHS
     Route: 065
     Dates: start: 202111, end: 202112
  4. PREDNISONE [Suspect]
     Active Substance: PREDNISONE
     Dosage: UNIT DOSE :  20 MG, , FREQUENCY TIME : 1 DAY, DURATION : 14 DAYS
     Route: 065
     Dates: start: 20220608, end: 20220622
  5. PREDNISONE [Suspect]
     Active Substance: PREDNISONE
     Dosage: UNIT DOSE :  20 MG, , FREQUENCY TIME : 1 DAY, DURATION : 63 DAYS
     Route: 065
     Dates: start: 20220113, end: 20220423
  6. PREDNISONE [Suspect]
     Active Substance: PREDNISONE
     Dosage: UNIT DOSE :  40 MG, , FREQUENCY TIME : 1 DAY, DURATION : 3 DAYS
     Route: 065
     Dates: start: 20220506, end: 20220509
  7. CARBOPLATIN [Suspect]
     Active Substance: CARBOPLATIN
     Indication: Neuroendocrine carcinoma
     Dosage: UNIT DOSE : 405 MG, STRENGTH  :10 MG/ML, DURATION :1 DAY, FREQUENCY TIME : 1 TOTAL
     Route: 065
     Dates: start: 20210909, end: 20210909
  8. CARBOPLATIN [Suspect]
     Active Substance: CARBOPLATIN
     Dosage: UNIT DOSE : 390 MG, STRENGTH  :10 MG/ML, DURATION :1 DAY, FREQUENCY TIME : 1 TOTAL
     Route: 065
     Dates: start: 20220608, end: 20220608
  9. CARBOPLATIN [Suspect]
     Active Substance: CARBOPLATIN
     Dosage: UNIT DOSE : 410 MG, STRENGTH  :10 MG/ML, DURATION :1 DAY, FREQUENCY TIME : 1 TOTAL
     Route: 065
     Dates: start: 20210318, end: 20210318
  10. CARBOPLATIN [Suspect]
     Active Substance: CARBOPLATIN
     Dosage: UNIT DOSE : 440 MG, STRENGTH  :10 MG/ML, DURATION :1 DAY, FREQUENCY TIME : 1 TOTAL
     Route: 065
     Dates: start: 20220215, end: 20220215
  11. CARBOPLATIN [Suspect]
     Active Substance: CARBOPLATIN
     Dosage: UNIT DOSE : 455 MG, STRENGTH  :10 MG/ML, DURATION :1 DAY, FREQUENCY TIME : 1 TOTAL
     Route: 065
     Dates: start: 20210803, end: 20210803
  12. CARBOPLATIN [Suspect]
     Active Substance: CARBOPLATIN
     Dosage: UNIT DOSE : 500 MG, STRENGTH  :10 MG/ML, DURATION :1 DAY, FREQUENCY TIME : 1 TOTAL
     Route: 065
     Dates: start: 20220506, end: 20220506
  13. CARBOPLATIN [Suspect]
     Active Substance: CARBOPLATIN
     Dosage: UNIT DOSE : 465 MG, STRENGTH  :10 MG/ML, DURATION :1 DAY, FREQUENCY TIME : 1 TOTAL
     Route: 065
     Dates: start: 20220117, end: 20220117
  14. CARBOPLATIN [Suspect]
     Active Substance: CARBOPLATIN
     Dosage: UNIT DOSE : 550 MG, STRENGTH  :10 MG/ML, DURATION :1 DAY, FREQUENCY TIME : 1 TOTAL
     Route: 065
     Dates: start: 20210531, end: 20210531
  15. CARBOPLATIN [Suspect]
     Active Substance: CARBOPLATIN
     Dosage: UNIT DOSE : 485 MG, STRENGTH  :10 MG/ML, DURATION :1 DAY, FREQUENCY TIME : 1 TOTAL
     Route: 065
     Dates: start: 20220404, end: 20220404
  16. CARBOPLATIN [Suspect]
     Active Substance: CARBOPLATIN
     Dosage: UNIT DOSE : 530 MG, STRENGTH  :10 MG/ML, DURATION :1 DAY, FREQUENCY TIME : 1 TOTAL
     Route: 065
     Dates: start: 20210623, end: 20210623
  17. CARBOPLATIN [Suspect]
     Active Substance: CARBOPLATIN
     Dosage: UNIT DOSE : 520 MG, STRENGTH  :10 MG/ML, DURATION :1 DAY, FREQUENCY TIME : 1 TOTAL
     Route: 065
     Dates: start: 20210713, end: 20210713
  18. CARBOPLATIN [Suspect]
     Active Substance: CARBOPLATIN
     Dosage: UNIT DOSE : 510 MG, STRENGTH  :10 MG/ML, DURATION :1 DAY, FREQUENCY TIME : 1 TOTAL
     Route: 065
     Dates: start: 20210505, end: 20210505
  19. CARBOPLATIN [Suspect]
     Active Substance: CARBOPLATIN
     Dosage: UNIT DOSE : 510 MG, STRENGTH  :10 MG/ML, DURATION :1 DAY, FREQUENCY TIME : 1 TOTAL
     Route: 065
     Dates: start: 20210412, end: 20210412
  20. CARBOPLATIN [Suspect]
     Active Substance: CARBOPLATIN
     Dosage: UNIT DOSE : 455 MG, STRENGTH  :10 MG/ML, DURATION :1 DAY, FREQUENCY TIME : 1 TOTAL
     Route: 065
     Dates: start: 20210803, end: 20210803
  21. SKENAN [Suspect]
     Active Substance: MORPHINE SULFATE
     Indication: Pain
     Dosage: SKENAN L.P. 10 MG, PROLONGED-RELEASE MICROGRANULES IN CAPSULE,  FREQUENCY TIME : 12 HOURS, UNIT DOSE
     Dates: start: 20220119
  22. PACLITAXEL [Suspect]
     Active Substance: PACLITAXEL
     Indication: Neuroendocrine carcinoma
     Dosage: STRENGTH  :6 MG/ML, UNIT DOSE :146 MG, FREQUENCY TIME : 1 TOTAL,  DURATION :1 DAY
     Route: 065
     Dates: start: 20210818, end: 20210818
  23. PACLITAXEL [Suspect]
     Active Substance: PACLITAXEL
     Dosage: STRENGTH  :6 MG/ML, UNIT DOSE :136 MG, FREQUENCY TIME : 1 TOTAL,  DURATION :1 DAY
     Route: 065
     Dates: start: 20220411, end: 20220411
  24. PACLITAXEL [Suspect]
     Active Substance: PACLITAXEL
     Dosage: STRENGTH  :6 MG/ML, UNIT DOSE :136 MG, FREQUENCY TIME : 1 TOTAL,  DURATION :1 DAY
     Route: 065
     Dates: start: 20220404, end: 20220404
  25. PACLITAXEL [Suspect]
     Active Substance: PACLITAXEL
     Dosage: STRENGTH  :6 MG/ML, UNIT DOSE :116 MG, FREQUENCY TIME : 1 TOTAL,  DURATION :1 DAY
     Route: 065
     Dates: start: 20220608, end: 20220608
  26. PACLITAXEL [Suspect]
     Active Substance: PACLITAXEL
     Dosage: STRENGTH  :6 MG/ML, UNIT DOSE :132 MG, FREQUENCY TIME : 1 TOTAL,  DURATION :1 DAY
     Route: 065
     Dates: start: 20220506, end: 20220506
  27. PACLITAXEL [Suspect]
     Active Substance: PACLITAXEL
     Dosage: STRENGTH  :6 MG/ML, UNIT DOSE :280 MG, FREQUENCY TIME : 1 TOTAL,  DURATION :1 DAY
     Route: 065
     Dates: start: 20210713, end: 20210713
  28. PACLITAXEL [Suspect]
     Active Substance: PACLITAXEL
     Dosage: STRENGTH  :6 MG/ML, UNIT DOSE :146 MG, FREQUENCY TIME : 1 TOTAL,  DURATION :1 DAY
     Route: 065
     Dates: start: 20210803, end: 20210803
  29. PACLITAXEL [Suspect]
     Active Substance: PACLITAXEL
     Dosage: STRENGTH  :6 MG/ML, UNIT DOSE :116 MG, FREQUENCY TIME : 1 TOTAL,  DURATION :1 DAY
     Route: 065
     Dates: start: 20220622, end: 20220622
  30. PACLITAXEL [Suspect]
     Active Substance: PACLITAXEL
     Dosage: STRENGTH  :6 MG/ML, UNIT DOSE :132 MG, FREQUENCY TIME : 1 TOTAL,  DURATION :1 DAY
     Route: 065
     Dates: start: 20220513, end: 20220513
  31. PACLITAXEL [Suspect]
     Active Substance: PACLITAXEL
     Dosage: STRENGTH  :6 MG/ML, UNIT DOSE :124 MG, FREQUENCY TIME : 1 TOTAL,  DURATION :1 DAY
     Route: 065
     Dates: start: 20210909, end: 20210909
  32. PACLITAXEL [Suspect]
     Active Substance: PACLITAXEL
     Dosage: STRENGTH  :6 MG/ML, UNIT DOSE :116 MG, FREQUENCY TIME : 1 TOTAL,  DURATION :1 DAY
     Route: 065
     Dates: start: 20220615, end: 20220615
  33. PACLITAXEL [Suspect]
     Active Substance: PACLITAXEL
     Dosage: STRENGTH  :6 MG/ML, UNIT DOSE :123 MG, FREQUENCY TIME : 1 TOTAL,  DURATION :1 DAY
     Route: 065
     Dates: start: 20210916, end: 20210916
  34. PACLITAXEL [Suspect]
     Active Substance: PACLITAXEL
     Dosage: STRENGTH  :6 MG/ML, UNIT DOSE :123 MG, FREQUENCY TIME : 1 TOTAL,  DURATION :1 DAY
     Route: 065
     Dates: start: 20210923, end: 20210923
  35. PACLITAXEL [Suspect]
     Active Substance: PACLITAXEL
     Dosage: STRENGTH  :6 MG/ML, UNIT DOSE :132 MG, FREQUENCY TIME : 1 TOTAL,  DURATION :1 DAY
     Route: 065
     Dates: start: 20220422, end: 20220422
  36. PACLITAXEL [Suspect]
     Active Substance: PACLITAXEL
     Dosage: STRENGTH  :6 MG/ML, UNIT DOSE :285 MG, FREQUENCY TIME : 1 TOTAL,  DURATION :1 DAY
     Route: 065
     Dates: start: 20210623, end: 20210623
  37. MORPHINE SULFATE [Suspect]
     Active Substance: MORPHINE SULFATE
     Indication: Pain
     Dosage: EVERY 4 HOURS IF NEEDED, UNIT DOSE AND STRENGTH : 5MG
     Route: 065
     Dates: start: 20220119

REACTIONS (1)
  - Pancreatitis acute [Not Recovered/Not Resolved]

NARRATIVE: CASE EVENT DATE: 20220712
